FAERS Safety Report 13001310 (Version 1)
Quarter: 2016Q4

REPORT INFORMATION
  Report Type: Spontaneous
  Country: PR (occurrence: PR)
  Receive Date: 20161206
  Receipt Date: 20161206
  Transmission Date: 20170207
  Serious: No
  Sender: FDA-Public Use
  Company Number: PR-PFIZER INC-2016556822

PATIENT
  Sex: Female

DRUGS (1)
  1. LYRICA [Suspect]
     Active Substance: PREGABALIN
     Dosage: 300 MG, UNK

REACTIONS (4)
  - Pain [Unknown]
  - Drug ineffective [Unknown]
  - Drug dose omission [Unknown]
  - Post herpetic neuralgia [Unknown]
